FAERS Safety Report 7431905-5 (Version None)
Quarter: 2011Q2

REPORT INFORMATION
  Report Type: 
  Country: None (occurrence: None)
  Receive Date: 20110422
  Receipt Date: 20110418
  Transmission Date: 20111010
  Serious: Yes (Other)
  Sender: FDA-Public Use
  Company Number: CA-PFIZER INC-2011084570

PATIENT
  Age: 63 Year
  Sex: Female

DRUGS (5)
  1. INSULIN LISPRO [Concomitant]
     Dosage: UNK
  2. NPH INSULIN [Concomitant]
     Dosage: UNK
  3. FUROSEMIDE [Concomitant]
     Dosage: UNK
  4. RAMIPRIL [Concomitant]
     Dosage: UNK
  5. CHAMPIX [Suspect]

REACTIONS (1)
  - HYPERGLYCAEMIA [None]
